FAERS Safety Report 24163978 (Version 1)
Quarter: 2024Q3

REPORT INFORMATION
  Report Type: Spontaneous
  Country: US (occurrence: US)
  Receive Date: 20240801
  Receipt Date: 20240801
  Transmission Date: 20241017
  Serious: No
  Sender: UPSHER-SMITH
  Company Number: US-UPSHER-SMITH LABORATORIES, LLC-2024USL00326

PATIENT

DRUGS (1)
  1. VIGADRONE [Suspect]
     Active Substance: VIGABATRIN
     Indication: Infantile spasms
     Dosage: 250 MG (5 ML), 2X/DAY
     Route: 048
     Dates: start: 20240328

REACTIONS (1)
  - Poor quality sleep [Unknown]

NARRATIVE: CASE EVENT DATE: 20240101
